FAERS Safety Report 6827360-6 (Version None)
Quarter: 2010Q3

REPORT INFORMATION
  Report Type: 
  Country: None (occurrence: None)
  Receive Date: 20100709
  Receipt Date: 20070110
  Transmission Date: 20110219
  Serious: No
  Sender: FDA-Public Use
  Company Number: US-PFIZER INC-2007003931

PATIENT
  Sex: Female
  Weight: 90.72 kg

DRUGS (16)
  1. CHANTIX [Suspect]
     Indication: SMOKING CESSATION THERAPY
     Route: 048
     Dates: start: 20070103
  2. VALSARTAN [Concomitant]
  3. CARDIZEM [Concomitant]
  4. LISINOPRIL [Concomitant]
  5. FUROSEMIDE [Concomitant]
  6. LANTUS [Concomitant]
     Indication: DIABETES MELLITUS
  7. GLIMEPIRIDE [Concomitant]
     Indication: DIABETES MELLITUS
  8. SIMVASTATIN [Concomitant]
  9. TRICOR [Concomitant]
  10. PREVACID [Concomitant]
     Indication: GASTROOESOPHAGEAL REFLUX DISEASE
  11. GABAPENTIN [Concomitant]
  12. MONTELUKAST SODIUM [Concomitant]
     Indication: DYSPNOEA
  13. ADVAIR DISKUS 100/50 [Concomitant]
  14. ALBUTEROL [Concomitant]
  15. NASONEX [Concomitant]
  16. PREVACID [Concomitant]

REACTIONS (2)
  - ERUCTATION [None]
  - FLATULENCE [None]
